FAERS Safety Report 8379766-4 (Version None)
Quarter: 2012Q2

REPORT INFORMATION
  Report Type: 
  Country: None (occurrence: None)
  Receive Date: 20120523
  Receipt Date: 20120515
  Transmission Date: 20120825
  Serious: Yes (Hospitalization, Other)
  Sender: FDA-Public Use
  Company Number: US-ASTRAZENECA-2011SE32254

PATIENT
  Age: 54 Year
  Sex: Female
  Weight: 122.3 kg

DRUGS (39)
  1. PROZAC [Concomitant]
     Dates: start: 20090223
  2. ASPIRIN [Concomitant]
     Dates: start: 20090223
  3. CLONAZEPAM [Concomitant]
     Indication: EMOTIONAL DISTRESS
  4. NEXIUM [Suspect]
     Route: 048
     Dates: start: 20090605
  5. NEXIUM [Suspect]
     Route: 048
     Dates: start: 20100507
  6. NEXIUM [Suspect]
     Route: 048
     Dates: start: 20100322
  7. TOPROL-XL [Concomitant]
     Dates: start: 20100315
  8. PROZAC [Concomitant]
     Dates: start: 20100315
  9. ALPRAZOLAM [Concomitant]
     Route: 048
     Dates: start: 20100317
  10. ROLAIDS [Concomitant]
  11. LOVAZA [Concomitant]
     Dates: start: 20101026
  12. NEXIUM [Suspect]
     Indication: DYSPEPSIA
     Route: 048
     Dates: start: 20090223
  13. ASPIRIN [Concomitant]
  14. BONIVA [Concomitant]
     Indication: OSTEOPOROSIS
     Dates: start: 20101026
  15. MIRAPEX [Concomitant]
     Dates: start: 20101026
  16. CELEBREX [Concomitant]
     Dates: start: 20090223
  17. NEXIUM [Suspect]
     Indication: GASTROOESOPHAGEAL REFLUX DISEASE
     Route: 048
     Dates: start: 20090223
  18. NEXIUM [Suspect]
     Route: 048
     Dates: start: 20100322
  19. TOPROL-XL [Concomitant]
     Dates: start: 20090223
  20. PEPCID [Concomitant]
  21. MAXZIDE [Concomitant]
     Dates: start: 20090605
  22. MAXZIDE [Concomitant]
     Dosage: 75 MG 1/2 TAB DAILY
     Dates: start: 20100322
  23. NEXIUM [Suspect]
     Route: 048
     Dates: start: 20100507
  24. HYDROCODONE [Concomitant]
     Dates: start: 20101026
  25. GARLIC [Concomitant]
     Dosage: ONE A DAY
     Dates: start: 20090506
  26. PROZAC [Concomitant]
     Indication: EMOTIONAL DISTRESS
     Dates: start: 20090506
  27. MIRAPEX [Concomitant]
     Dates: start: 20090223
  28. MIRAPEX [Concomitant]
     Dates: start: 20100315
  29. HYDROCODONE [Concomitant]
     Dosage: 5 MG/500 MG
     Dates: start: 20090223
  30. HYDROCODONE [Concomitant]
     Dates: start: 20100315
  31. NEXIUM [Suspect]
     Route: 048
     Dates: start: 20090605
  32. NEXIUM [Suspect]
     Route: 048
     Dates: start: 20090801, end: 20110401
  33. NEXIUM [Suspect]
     Route: 048
     Dates: start: 20090801, end: 20110401
  34. TOPROL-XL [Concomitant]
     Indication: HYPERTENSION
  35. BONIVA [Concomitant]
     Dates: start: 20090223
  36. MAXZIDE [Concomitant]
     Dates: start: 20090223
  37. LOVAZA [Concomitant]
     Dates: start: 20090223
  38. LOVAZA [Concomitant]
     Dates: start: 20100315
  39. CELEBREX [Concomitant]
     Dates: start: 20090605

REACTIONS (11)
  - INTERVERTEBRAL DISC DEGENERATION [None]
  - OSTEOARTHRITIS [None]
  - JOINT DISLOCATION [None]
  - BONE DISORDER [None]
  - ARTHRITIS [None]
  - INTERVERTEBRAL DISC PROTRUSION [None]
  - OSTEOPOROSIS [None]
  - NECK PAIN [None]
  - SPINAL OSTEOARTHRITIS [None]
  - BONE FORMATION DECREASED [None]
  - HAND FRACTURE [None]
